FAERS Safety Report 8494666-7 (Version None)
Quarter: 2012Q3

REPORT INFORMATION
  Report Type: 
  Country: None (occurrence: None)
  Receive Date: 20120709
  Receipt Date: 20120704
  Transmission Date: 20120928
  Serious: Yes (Hospitalization)
  Sender: FDA-Public Use
  Company Number: PHHY2012DK057301

PATIENT
  Sex: Female

DRUGS (8)
  1. ENALAPRIL MALEATE [Suspect]
     Dosage: 5 MG
     Route: 048
     Dates: end: 20120625
  2. ISOPTIN [Suspect]
     Dosage: 120 MG
     Route: 048
     Dates: end: 20120625
  3. DIGOXIN [Suspect]
     Dosage: 125 UG
     Route: 048
  4. FLUTICASONE PROPIONATE/SALMETEROL [Concomitant]
  5. FUROSEMIDE [Concomitant]
  6. ASPIRIN [Concomitant]
  7. COZAAR [Suspect]
     Route: 048
     Dates: end: 20120625
  8. SIMVASTATIN [Concomitant]

REACTIONS (3)
  - ATRIOVENTRICULAR BLOCK COMPLETE [None]
  - DYSPNOEA [None]
  - HYPOTENSION [None]
